FAERS Safety Report 17804264 (Version 2)
Quarter: 2020Q2

REPORT INFORMATION
  Report Type: Report from Study
  Country: ES (occurrence: ES)
  Receive Date: 20200519
  Receipt Date: 20200603
  Transmission Date: 20200714
  Serious: Yes (Death, Hospitalization)
  Sender: FDA-Public Use
  Company Number: ES-JNJFOC-20200312993

PATIENT
  Age: 73 Year
  Sex: Male

DRUGS (5)
  1. FUROSEMIDE. [Concomitant]
     Active Substance: FUROSEMIDE
     Dosage: 120 MG
     Dates: start: 20140617, end: 20191221
  2. RIVAROXABAN [Suspect]
     Active Substance: RIVAROXABAN
     Indication: CARDIAC FAILURE
  3. BEMIPARIN [Concomitant]
     Active Substance: BEMIPARIN
     Dosage: 2500 IU
     Dates: start: 20190513, end: 20191221
  4. RIVAROXABAN [Suspect]
     Active Substance: RIVAROXABAN
     Indication: ATRIAL FIBRILLATION
     Dosage: 15 MG, QD
     Route: 048
     Dates: start: 20140617, end: 20190513
  5. EPLERENONE. [Concomitant]
     Active Substance: EPLERENONE
     Dosage: 25 MG
     Dates: start: 20161103, end: 20191221

REACTIONS (2)
  - Death [Fatal]
  - Vomiting [Recovered/Resolved]

NARRATIVE: CASE EVENT DATE: 20190424
